FAERS Safety Report 21883946 (Version 1)
Quarter: 2023Q1

REPORT INFORMATION
  Report Type: Spontaneous
  Country: US (occurrence: None)
  Receive Date: 20230118
  Receipt Date: 20230118
  Transmission Date: 20230417
  Serious: Yes (Hospitalization)
  Sender: FDA-Public Use
  Company Number: None

PATIENT
  Age: 76 Year
  Sex: Male
  Weight: 84 kg

DRUGS (1)
  1. CHLORTHALIDONE [Suspect]
     Active Substance: CHLORTHALIDONE
     Indication: Hypertension
     Dosage: OTHER FREQUENCY : MORNINGS;?
     Route: 048
     Dates: start: 20210127, end: 20221122

REACTIONS (2)
  - Hypovolaemia [None]
  - Hyponatraemia [None]

NARRATIVE: CASE EVENT DATE: 20221122
